FAERS Safety Report 15601825 (Version 2)
Quarter: 2019Q1

REPORT INFORMATION
  Report Type: Spontaneous
  Country: CA (occurrence: CA)
  Receive Date: 20181109
  Receipt Date: 20190213
  Transmission Date: 20190417
  Serious: Yes (Death, Hospitalization, Other)
  Sender: FDA-Public Use
  Company Number: CA-GLAXOSMITHKLINE-CA2018GSK149224

PATIENT
  Sex: Female

DRUGS (1)
  1. TRELEGY ELLIPTA [Suspect]
     Active Substance: FLUTICASONE FUROATE\UMECLIDINIUM BROMIDE\VILANTEROL TRIFENATATE
     Indication: PRODUCT USED FOR UNKNOWN INDICATION
     Dosage: UNK

REACTIONS (4)
  - Cough [Unknown]
  - Sputum discoloured [Unknown]
  - Pneumonia [Unknown]
  - Death [Fatal]
